FAERS Safety Report 5921048-1 (Version None)
Quarter: 2008Q4

REPORT INFORMATION
  Report Type: 
  Country: None (occurrence: None)
  Receive Date: 20081016
  Receipt Date: 20081008
  Transmission Date: 20090506
  Serious: Yes (Hospitalization)
  Sender: FDA-Public Use
  Company Number: US-GILEAD-2008-0018308

PATIENT
  Sex: Male
  Weight: 107 kg

DRUGS (2)
  1. LETAIRIS [Suspect]
     Route: 048
     Dates: start: 20080501
  2. COUMADIN [Concomitant]

REACTIONS (2)
  - CHOLECYSTITIS [None]
  - CHOLELITHIASIS [None]
